FAERS Safety Report 23295199 (Version 1)
Quarter: 2023Q4

REPORT INFORMATION
  Report Type: Spontaneous
  Country: JP (occurrence: JP)
  Receive Date: 20231214
  Receipt Date: 20231214
  Transmission Date: 20240110
  Serious: Yes (Death, Other)
  Sender: FDA-Public Use
  Company Number: JP-SANDOZ-SDZ2023JP051527

PATIENT
  Age: 67 Year

DRUGS (5)
  1. OCTREOTIDE [Suspect]
     Active Substance: OCTREOTIDE
     Indication: Abdominal discomfort
     Dosage: UNK (1A, ONE SHOT)
     Route: 058
     Dates: start: 20231028, end: 20231030
  2. OCTREOTIDE [Suspect]
     Active Substance: OCTREOTIDE
     Dosage: UNK (3A, 24H)
     Route: 042
     Dates: start: 20231031, end: 20231119
  3. OCTREOTIDE [Suspect]
     Active Substance: OCTREOTIDE
     Dosage: UNK (3A, 24H)
     Route: 058
     Dates: start: 20231119
  4. AMINO ACIDS\DEXTROSE\ELECTROLYTES NOS\MINERALS\VITAMINS [Concomitant]
     Active Substance: AMINO ACIDS\DEXTROSE\ELECTROLYTES NOS\MINERALS\VITAMINS
     Indication: Product used for unknown indication
     Dosage: UNK
     Route: 042
     Dates: start: 20231031, end: 20231119
  5. SODIUM CHLORIDE [Concomitant]
     Active Substance: SODIUM CHLORIDE
     Indication: Product used for unknown indication
     Dosage: UNK
     Route: 058
     Dates: start: 20231119

REACTIONS (3)
  - Malignant neoplasm progression [Fatal]
  - Pancreatic carcinoma [Fatal]
  - Off label use [Unknown]

NARRATIVE: CASE EVENT DATE: 20231123
